FAERS Safety Report 6371980-2 (Version None)
Quarter: 2009Q3

REPORT INFORMATION
  Report Type: 
  Country: None (occurrence: None)
  Receive Date: 20090917
  Receipt Date: 20090904
  Transmission Date: 20100115
  Serious: Yes (Hospitalization, Other)
  Sender: FDA-Public Use
  Company Number: ADR19142009

PATIENT
  Age: 13 Month
  Sex: Male

DRUGS (3)
  1. SALBUTAMOL (MFR: UNKNOWN) [Suspect]
     Dosage: 2.5 MG
     Route: 055
  2. HYDROCORTISONE [Concomitant]
  3. IPRATROPIUM BROMIDE [Concomitant]

REACTIONS (10)
  - DIABETIC KETOACIDOSIS [None]
  - GRUNTING [None]
  - HYPERHIDROSIS [None]
  - LETHARGY [None]
  - METABOLIC ACIDOSIS [None]
  - PALLOR [None]
  - RHINITIS [None]
  - TACHYCARDIA [None]
  - TACHYPNOEA [None]
  - TYPE 1 DIABETES MELLITUS [None]
